FAERS Safety Report 4531134-9 (Version None)
Quarter: 2004Q4

REPORT INFORMATION
  Report Type: 
  Country: None (occurrence: None)
  Receive Date: 20041216
  Receipt Date: 20041203
  Transmission Date: 20050328
  Serious: No
  Sender: FDA-Public Use
  Company Number: 2004AP06160

PATIENT
  Age: 82 Year
  Sex: Female

DRUGS (4)
  1. OMEPRAL [Suspect]
     Indication: REFLUX OESOPHAGITIS
     Dosage: 20 MG DAILY PO
     Route: 048
     Dates: start: 20000427, end: 20000531
  2. OMEPRAL [Suspect]
     Indication: REFLUX OESOPHAGITIS
     Dosage: 20 MG DAILY PO
     Route: 048
     Dates: start: 20001213, end: 20041117
  3. MAGNESIUM OXIDE [Concomitant]
  4. ADALAT [Concomitant]

REACTIONS (3)
  - CARCINOID TUMOUR OF THE DUODENUM [None]
  - GASTRIC POLYPS [None]
  - HIATUS HERNIA [None]
